FAERS Safety Report 17771016 (Version 2)
Quarter: 2020Q2

REPORT INFORMATION
  Report Type: Spontaneous
  Country: FR (occurrence: FR)
  Receive Date: 20200512
  Receipt Date: 20200519
  Transmission Date: 20200714
  Serious: Yes (Life-Threatening)
  Sender: FDA-Public Use
  Company Number: FR-MYLANLABS-2020M1045647

PATIENT
  Age: 66 Year
  Sex: Female
  Weight: 120 kg

DRUGS (4)
  1. ZITHROMAX [Interacting]
     Active Substance: AZITHROMYCIN DIHYDRATE
     Indication: CORONAVIRUS INFECTION
     Dosage: 500 MILLIGRAM, QD
     Route: 048
     Dates: start: 20200325, end: 20200326
  2. ZYVOXID [Concomitant]
     Active Substance: LINEZOLID
     Indication: PNEUMONIA STAPHYLOCOCCAL
     Dosage: 1200 MILLIGRAM
     Route: 042
     Dates: start: 20200327, end: 20200331
  3. PLAQUENIL [Interacting]
     Active Substance: HYDROXYCHLOROQUINE SULFATE
     Indication: CORONAVIRUS INFECTION
     Dosage: 600 MILLIGRAM, QD
     Route: 048
     Dates: start: 20200325, end: 20200330
  4. LEVOFLOXACIN. [Suspect]
     Active Substance: LEVOFLOXACIN
     Indication: CORONAVIRUS INFECTION
     Dosage: 1000 MILLIGRAM
     Route: 042
     Dates: start: 20200326, end: 20200330

REACTIONS (4)
  - Drug interaction [Unknown]
  - Off label use [Unknown]
  - Electrocardiogram QT prolonged [Unknown]
  - Sinus bradycardia [Unknown]

NARRATIVE: CASE EVENT DATE: 20200326
